FAERS Safety Report 6169163-4 (Version None)
Quarter: 2009Q2

REPORT INFORMATION
  Report Type: 
  Country: None (occurrence: None)
  Receive Date: 20090424
  Receipt Date: 20081202
  Transmission Date: 20091009
  Serious: No
  Sender: FDA-Public Use
  Company Number: ALL1-2008-03448

PATIENT
  Age: 6 Year
  Sex: Male
  Weight: 22.2 kg

DRUGS (3)
  1. VYVANSE [Suspect]
     Indication: ATTENTION DEFICIT/HYPERACTIVITY DISORDER
     Dosage: 30 MG, 1X/DAY:QD, ORAL ; 1X/DAY:QD (1/3 CONTENTS OF CAPSULE), ORAL
     Route: 048
     Dates: start: 20081201, end: 20081201
  2. VYVANSE [Suspect]
     Indication: ATTENTION DEFICIT/HYPERACTIVITY DISORDER
     Dosage: 30 MG, 1X/DAY:QD, ORAL ; 1X/DAY:QD (1/3 CONTENTS OF CAPSULE), ORAL
     Route: 048
     Dates: start: 20081202
  3. DESMOPRESSIN ACETATE [Concomitant]

REACTIONS (9)
  - BRUXISM [None]
  - CONDITION AGGRAVATED [None]
  - DECREASED APPETITE [None]
  - DRY MOUTH [None]
  - DYSKINESIA [None]
  - INSOMNIA [None]
  - LOGORRHOEA [None]
  - PSYCHOMOTOR HYPERACTIVITY [None]
  - WRONG TECHNIQUE IN DRUG USAGE PROCESS [None]
